FAERS Safety Report 8126195-4 (Version None)
Quarter: 2012Q1

REPORT INFORMATION
  Report Type: 
  Country: None (occurrence: None)
  Receive Date: 20120209
  Receipt Date: 20120203
  Transmission Date: 20120608
  Serious: Yes (Other)
  Sender: FDA-Public Use
  Company Number: PHHY2012BR009935

PATIENT
  Age: 19 Year
  Sex: Male

DRUGS (2)
  1. TEGRETOL-XR [Suspect]
     Dosage: 400 MG, UNK
  2. TEGRETOL [Suspect]

REACTIONS (1)
  - CONVULSION [None]
